FAERS Safety Report 10766811 (Version 2)
Quarter: 2015Q3

REPORT INFORMATION
  Report Type: Report from Study
  Country: US (occurrence: US)
  Receive Date: 20150205
  Receipt Date: 20150724
  Transmission Date: 20151125
  Serious: Yes (Hospitalization)
  Sender: FDA-Public Use
  Company Number: US-GILEAD-2015-0135031

PATIENT
  Age: 74 Year
  Sex: Female

DRUGS (21)
  1. FUROSEMIDE. [Concomitant]
     Active Substance: FUROSEMIDE
     Dosage: 20 MG, UNK
  2. AMBRISENTAN [Suspect]
     Active Substance: AMBRISENTAN
     Indication: COR PULMONALE CHRONIC
  3. ALBUTEROL                          /00139501/ [Concomitant]
     Active Substance: ALBUTEROL
  4. MAGNESIUM [Concomitant]
     Active Substance: MAGNESIUM
     Dosage: 500 MG, UNK
  5. LYSINE [Concomitant]
     Active Substance: LYSINE
     Dosage: 500 MG, UNK
  6. VITAMIN D [Concomitant]
     Active Substance: CHOLECALCIFEROL
  7. SILDENAFIL. [Concomitant]
     Active Substance: SILDENAFIL
  8. AMBRISENTAN [Suspect]
     Active Substance: AMBRISENTAN
     Indication: PULMONARY ARTERIAL HYPERTENSION
     Dosage: 5 MG, QD
     Route: 065
     Dates: start: 20140917
  9. CALCIUM [Concomitant]
     Active Substance: CALCIUM
  10. VITAMIN K2                         /00564301/ [Concomitant]
  11. WARFARIN [Concomitant]
     Active Substance: WARFARIN
  12. GABAPENTIN. [Concomitant]
     Active Substance: GABAPENTIN
  13. HYDROCODONE [Concomitant]
     Active Substance: HYDROCODONE
  14. QUININE [Concomitant]
     Active Substance: QUININE
  15. FLONASE [Concomitant]
     Active Substance: FLUTICASONE PROPIONATE
  16. QVAR [Concomitant]
     Active Substance: BECLOMETHASONE DIPROPIONATE
  17. UBIQUINOL [Concomitant]
     Dosage: 100 MG, UNK
  18. POTASSIUM [Concomitant]
     Active Substance: POTASSIUM
     Dosage: 99 MG, UNK
  19. LYRICA [Concomitant]
     Active Substance: PREGABALIN
  20. OMEGA-3 FATTY ACIDS [Concomitant]
     Active Substance: OMEGA-3 FATTY ACIDS
  21. MULTI VITAMIN [Concomitant]
     Active Substance: VITAMINS

REACTIONS (2)
  - Cough [Recovered/Resolved]
  - Dyspnoea [Recovered/Resolved]

NARRATIVE: CASE EVENT DATE: 20150123
